FAERS Safety Report 16456362 (Version 1)
Quarter: 2019Q2

REPORT INFORMATION
  Report Type: Spontaneous
  Country: BE (occurrence: BE)
  Receive Date: 20190620
  Receipt Date: 20190620
  Transmission Date: 20190711
  Serious: Yes (Other)
  Sender: FDA-Public Use
  Company Number: BE-PFIZER INC-2019259292

PATIENT
  Age: 17 Year
  Sex: Female

DRUGS (4)
  1. GILENYA [Suspect]
     Active Substance: FINGOLIMOD HYDROCHLORIDE
     Indication: MULTIPLE SCLEROSIS
     Dosage: UNK
     Route: 065
     Dates: start: 2012
  2. REBIF [Suspect]
     Active Substance: INTERFERON BETA-1A
     Dosage: UNK
     Dates: start: 20180524, end: 20180809
  3. SOLU-MEDROL [Suspect]
     Active Substance: METHYLPREDNISOLONE SODIUM SUCCINATE
     Dosage: 1 G, UNK, FOR 5 DAYS
     Dates: start: 20181010
  4. GILENYA [Suspect]
     Active Substance: FINGOLIMOD HYDROCHLORIDE
     Dosage: 1 DF, 1X/DAY
     Route: 065
     Dates: start: 20141203, end: 201804

REACTIONS (10)
  - Clinically isolated syndrome [Unknown]
  - Lymphopenia [Unknown]
  - Multiple sclerosis relapse [Unknown]
  - Urinary tract disorder [Unknown]
  - Central nervous system lesion [Unknown]
  - Aphasia [Unknown]
  - Sensory disturbance [Unknown]
  - Pyelonephritis [Unknown]
  - Monoparesis [Unknown]
  - Fatigue [Unknown]

NARRATIVE: CASE EVENT DATE: 201404
